FAERS Safety Report 21128690 (Version 4)
Quarter: 2022Q4

REPORT INFORMATION
  Report Type: Report from Study
  Country: US (occurrence: None)
  Receive Date: 20220725
  Receipt Date: 20221128
  Transmission Date: 20230113
  Serious: Yes (Other)
  Sender: FDA-Public Use
  Company Number: US-ROCHE-3114171

PATIENT
  Age: 79 Year
  Sex: Female
  Weight: 52.7 kg

DRUGS (13)
  1. RANIBIZUMAB [Suspect]
     Active Substance: RANIBIZUMAB
     Indication: Neovascular age-related macular degeneration
     Dosage: START DATE OF MOST RECENT DOSE OF STUDY DRUG PRIOR TO SAE ON 07/JUN/2022?EVERY 24 WEEKS
     Route: 050
     Dates: start: 20210112
  2. RANIBIZUMAB [Suspect]
     Active Substance: RANIBIZUMAB
  3. RANIBIZUMAB [Suspect]
     Active Substance: RANIBIZUMAB
  4. RANIBIZUMAB [Suspect]
     Active Substance: RANIBIZUMAB
  5. RANIBIZUMAB [Suspect]
     Active Substance: RANIBIZUMAB
  6. RANIBIZUMAB [Concomitant]
     Active Substance: RANIBIZUMAB
     Dosage: START DATE OF MOST RECENT DOSE OF STUDY DRUG?PRIOR TO SAE: 08-APR-2022
     Route: 050
     Dates: start: 20210216
  7. LIPITOR [Concomitant]
     Active Substance: ATORVASTATIN CALCIUM
     Indication: Hypercholesterolaemia
     Route: 048
     Dates: start: 2010
  8. MINERALS\VITAMINS [Concomitant]
     Active Substance: MINERALS\VITAMINS
     Route: 048
     Dates: start: 2016
  9. CLEAR EYES MAXIMUM ITCHY EYE RELIEF [Concomitant]
     Active Substance: GLYCERIN\NAPHAZOLINE HYDROCHLORIDE\ZINC SULFATE
     Indication: Ocular discomfort
     Route: 001
     Dates: start: 20161208
  10. OFLOXACIN [Concomitant]
     Active Substance: OFLOXACIN
     Dates: start: 20220527, end: 20220607
  11. OFLOXACIN [Concomitant]
     Active Substance: OFLOXACIN
     Dates: start: 20220607, end: 20220616
  12. PREDNISOLONE [Concomitant]
     Active Substance: PREDNISOLONE
     Route: 061
     Dates: start: 20210119
  13. PREDNISOLONE [Concomitant]
     Active Substance: PREDNISOLONE
     Dates: start: 20220602, end: 20220607

REACTIONS (2)
  - Drug delivery system issue [Unknown]
  - No adverse event [Unknown]

NARRATIVE: CASE EVENT DATE: 20220607
